FAERS Safety Report 5780037-0 (Version None)
Quarter: 2008Q2

REPORT INFORMATION
  Report Type: 
  Country: None (occurrence: None)
  Receive Date: 20080620
  Receipt Date: 20080606
  Transmission Date: 20081010
  Serious: Yes (Hospitalization)
  Sender: FDA-Public Use
  Company Number: FR-ROCHE-569008

PATIENT
  Sex: Female

DRUGS (11)
  1. ROCEPHIN [Suspect]
     Indication: URINARY TRACT INFECTION
     Route: 048
     Dates: start: 20080426, end: 20080502
  2. METHOTREXATE [Suspect]
     Indication: DRUG USE FOR UNKNOWN INDICATION
     Dosage: TAKEN ON THURSDAYS FOR 10 YEARS
     Route: 048
     Dates: start: 19980101, end: 20080401
  3. OFLOCET [Concomitant]
     Indication: URINARY TRACT INFECTION
     Route: 048
     Dates: start: 20080426, end: 20080506
  4. LASIX [Concomitant]
     Indication: DRUG USE FOR UNKNOWN INDICATION
     Route: 065
  5. NEXIUM [Concomitant]
  6. DAFALGAN [Concomitant]
     Dosage: DRUG NAME DAFALGAN 500. TAKEN WHEN NEEDED
  7. PAROXETINE HCL [Concomitant]
  8. IMOVANE [Concomitant]
  9. TARDYFERON [Concomitant]
  10. TARDYFERON [Concomitant]
  11. TARDYFERON [Concomitant]

REACTIONS (1)
  - PANCYTOPENIA [None]
